FAERS Safety Report 8046853-X (Version None)
Quarter: 2012Q1

REPORT INFORMATION
  Report Type: 
  Country: None (occurrence: None)
  Receive Date: 20120116
  Receipt Date: 20120109
  Transmission Date: 20120608
  Serious: Yes (Hospitalization, Other)
  Sender: FDA-Public Use
  Company Number: US-AMGEN-USASP2012001356

PATIENT
  Age: 67 Year
  Sex: Female

DRUGS (1)
  1. ENBREL [Suspect]
     Indication: RHEUMATOID ARTHRITIS
     Dosage: 50 MG, QWK
     Dates: start: 20090302

REACTIONS (10)
  - INJECTION SITE SWELLING [None]
  - ARTHRALGIA [None]
  - OSTEONECROSIS [None]
  - SCIATICA [None]
  - INJECTION SITE PRURITUS [None]
  - GAIT DISTURBANCE [None]
  - ROTATOR CUFF SYNDROME [None]
  - INJECTION SITE ERYTHEMA [None]
  - DIABETES MELLITUS [None]
  - OSTEOARTHRITIS [None]
